FAERS Safety Report 12689325 (Version 3)
Quarter: 2016Q3

REPORT INFORMATION
  Report Type: Report from Study
  Country: US (occurrence: US)
  Receive Date: 20160826
  Receipt Date: 20160907
  Transmission Date: 20161109
  Serious: Yes (Other)
  Sender: FDA-Public Use
  Company Number: US-AMGEN-USASL2016109935

PATIENT
  Age: 60 Year
  Sex: Female
  Weight: 86.62 kg

DRUGS (2)
  1. ENBREL [Suspect]
     Active Substance: ETANERCEPT
     Indication: PSORIASIS
     Dosage: 50 MG, QWK
     Route: 058
     Dates: start: 20061226, end: 2014
  2. ENBREL [Suspect]
     Active Substance: ETANERCEPT
     Indication: PSORIATIC ARTHROPATHY
     Dosage: 50 MG, 2 TIMES/WK
     Route: 058
     Dates: start: 20160831

REACTIONS (4)
  - Nephrolithiasis [Unknown]
  - Psoriasis [Not Recovered/Not Resolved]
  - Surgery [Recovered/Resolved]
  - Metabolic surgery [Recovered/Resolved]
